FAERS Safety Report 17364014 (Version 1)
Quarter: 2020Q1

REPORT INFORMATION
  Report Type: Spontaneous
  Country: US (occurrence: US)
  Receive Date: 20200204
  Receipt Date: 20200204
  Transmission Date: 20200409
  Serious: Yes (Hospitalization)
  Sender: FDA-Public Use
  Company Number: US-TEVA-2020-US-1178892

PATIENT
  Age: 55 Year
  Sex: Male
  Weight: 85 kg

DRUGS (14)
  1. LIDOCAINE. [Interacting]
     Active Substance: LIDOCAINE
     Indication: PROCEDURAL PAIN
     Dosage: TOTAL DOSE: 460MG
     Route: 041
  2. HEPARIN [Concomitant]
     Active Substance: HEPARIN SODIUM
     Dosage: 5000 U EVERY 8H
     Route: 058
  3. VANCOMYCIN [Concomitant]
     Active Substance: VANCOMYCIN
     Dosage: 2.5 GRAM DAILY;
     Route: 042
  4. ABACAVIR-LAMIVUDINE [Suspect]
     Active Substance: ABACAVIR\LAMIVUDINE
     Indication: HIV INFECTION
     Dosage: 1 DOSAGE FORMS DAILY;
     Route: 048
  5. ATAZANAVIR. [Interacting]
     Active Substance: ATAZANAVIR
     Indication: HIV INFECTION
     Dosage: 300 MILLIGRAM DAILY;
     Route: 048
  6. LIDOCAINE. [Interacting]
     Active Substance: LIDOCAINE
     Indication: PROCEDURAL PAIN
     Dosage: RESTARTED APPROXIMATELY 1 HOUR LATER
     Route: 041
  7. FENTANYL. [Concomitant]
     Active Substance: FENTANYL
     Dosage: TOTAL DOSE: 1140MICROG
     Route: 042
  8. CANDESARTAN. [Concomitant]
     Active Substance: CANDESARTAN
     Dosage: 16 MILLIGRAM DAILY;
     Route: 048
  9. ASPIRIN. [Concomitant]
     Active Substance: ASPIRIN
     Dosage: 325 MILLIGRAM DAILY;
     Route: 048
  10. METOPROLOL SUCCINATE. [Concomitant]
     Active Substance: METOPROLOL SUCCINATE
     Dosage: 25 MILLIGRAM DAILY;
     Route: 048
  11. ROSUVASTATIN. [Concomitant]
     Active Substance: ROSUVASTATIN
     Dosage: 40 MILLIGRAM DAILY; AFTER NOON
     Route: 048
  12. LIDOCAINE. [Interacting]
     Active Substance: LIDOCAINE
     Indication: PROCEDURAL PAIN
     Route: 040
  13. RITONAVIR. [Interacting]
     Active Substance: RITONAVIR
     Indication: HIV INFECTION
     Dosage: 100 MILLIGRAM DAILY;
     Route: 048
  14. CIPROFLOXACIN. [Concomitant]
     Active Substance: CIPROFLOXACIN
     Dosage: 800 MILLIGRAM DAILY;
     Route: 042

REACTIONS (7)
  - Drug interaction [Unknown]
  - Toxicity to various agents [Unknown]
  - Hypertension [Unknown]
  - Sinus tachycardia [Unknown]
  - Oxygen saturation decreased [Recovering/Resolving]
  - Unresponsive to stimuli [Recovered/Resolved]
  - Dizziness [Unknown]
